FAERS Safety Report 6459098-1 (Version None)
Quarter: 2009Q4

REPORT INFORMATION
  Report Type: 
  Country: None (occurrence: None)
  Receive Date: 20091125
  Receipt Date: 20091125
  Transmission Date: 20100525
  Serious: Yes (Life-Threatening, Hospitalization, Other)
  Sender: FDA-Public Use
  Company Number: None

PATIENT
  Age: 79 Year
  Sex: Male
  Weight: 82.5547 kg

DRUGS (1)
  1. FLOMAX [Suspect]
     Indication: PROSTATITIS
     Dosage: 30 DAILEY PO
     Route: 048
     Dates: start: 20091105

REACTIONS (7)
  - COLD SWEAT [None]
  - DIZZINESS [None]
  - LACRIMATION INCREASED [None]
  - POLLAKIURIA [None]
  - RHINORRHOEA [None]
  - SALIVARY HYPERSECRETION [None]
  - SYNCOPE [None]
